FAERS Safety Report 10562320 (Version 3)
Quarter: 2014Q4

REPORT INFORMATION
  Report Type: Spontaneous
  Country: IT (occurrence: IT)
  Receive Date: 20141104
  Receipt Date: 20141130
  Transmission Date: 20150529
  Serious: Yes (Hospitalization, Other)
  Sender: FDA-Public Use
  Company Number: IT-009507513-1410ITA015560

PATIENT
  Age: 69 Year
  Sex: Male

DRUGS (4)
  1. RIBAVIRIN. [Suspect]
     Active Substance: RIBAVIRIN
     Dosage: 1200 MG/KG, QD
     Route: 048
     Dates: start: 20140325, end: 20140503
  2. PEGINTERFERON ALFA-2B [Suspect]
     Active Substance: PEGINTERFERON ALFA-2B
     Dosage: 120 MICROGRAM PER KILOGRAM, QW, FORMULATION: POWDER AND SOLVENT FOR INJECTABLE SOLUTION
     Route: 058
     Dates: start: 20140325, end: 20140503
  3. TELAPREVIR [Suspect]
     Active Substance: TELAPREVIR
     Dosage: 2250 MG/KG, QD
     Route: 048
     Dates: start: 20140325, end: 20140503
  4. ATENOLOL. [Concomitant]
     Active Substance: ATENOLOL

REACTIONS (3)
  - Rash [Unknown]
  - Hepatic failure [Unknown]
  - Encephalopathy [Unknown]

NARRATIVE: CASE EVENT DATE: 20140530
